FAERS Safety Report 18957681 (Version 1)
Quarter: 2021Q1

REPORT INFORMATION
  Report Type: Spontaneous
  Country: MA (occurrence: MA)
  Receive Date: 20210302
  Receipt Date: 20210302
  Transmission Date: 20210420
  Serious: Yes (Death)
  Sender: FDA-Public Use
  Company Number: MA-FRESENIUS KABI-FK202101931

PATIENT
  Age: 63 Year
  Sex: Male

DRUGS (1)
  1. ACYCLOVIR SODIUM (MANUFACTURER UNKNOWN) [Suspect]
     Active Substance: ACYCLOVIR SODIUM
     Indication: VARICELLA ZOSTER PNEUMONIA
     Route: 065

REACTIONS (1)
  - Treatment failure [Fatal]
